FAERS Safety Report 14217186 (Version 1)
Quarter: 2017Q4

REPORT INFORMATION
  Report Type: Spontaneous
  Country: US (occurrence: US)
  Receive Date: 20171122
  Receipt Date: 20171122
  Transmission Date: 20180321
  Serious: No
  Sender: FDA-Public Use
  Company Number: US-LUPIN PHARMACEUTICALS INC.-E2B_00007263

PATIENT
  Age: 64 Year
  Sex: Female
  Weight: 83.7 kg

DRUGS (2)
  1. METFORMIN HYDROCHLORIDE EXTENDED RELEASE TABLET USP 500 MG [Suspect]
     Active Substance: METFORMIN HYDROCHLORIDE
     Indication: TYPE 2 DIABETES MELLITUS
     Dosage: 2 TABLETS IN THE MORNING AND 1 TABLETS?IN THE EVENING
     Route: 048
     Dates: start: 201604
  2. METFORMIN HYDROCHLORIDE EXTENDED RELEASE TABLET USP 500 MG [Suspect]
     Active Substance: METFORMIN HYDROCHLORIDE
     Dosage: 500 MG,BID,
     Route: 048
     Dates: start: 20161224

REACTIONS (3)
  - Product physical issue [Unknown]
  - Product odour abnormal [Unknown]
  - Diarrhoea [Not Recovered/Not Resolved]

NARRATIVE: CASE EVENT DATE: 20161226
